FAERS Safety Report 8672868 (Version 2)
Quarter: 2013Q1

REPORT INFORMATION
  Report Type: Spontaneous
  Country: US (occurrence: US)
  Receive Date: 20120719
  Receipt Date: 20130225
  Transmission Date: 20140127
  Serious: No
  Sender: FDA-Public Use
  Company Number: US-PFIZER INC-2012172645

PATIENT
  Age: 59 Year
  Sex: Male
  Weight: 90.7 kg

DRUGS (2)
  1. ADVIL [Suspect]
     Indication: SPINAL COLUMN INJURY
     Dosage: 200 MG, AS NEEDED
     Route: 048
     Dates: start: 20120714, end: 20120717
  2. ADVIL [Suspect]
     Dosage: UNK
     Dates: start: 2012

REACTIONS (3)
  - Drug ineffective [Unknown]
  - Nausea [Not Recovered/Not Resolved]
  - Vomiting [Unknown]
